FAERS Safety Report 15661820 (Version 1)
Quarter: 2018Q4

REPORT INFORMATION
  Report Type: Spontaneous
  Country: US (occurrence: US)
  Receive Date: 20181116
  Receipt Date: 20181116
  Transmission Date: 20190205
  Serious: Yes (Disabling)
  Sender: FDA-Public Use
  Company Number: None

PATIENT
  Age: 79 Year
  Sex: Female
  Weight: 77.11 kg

DRUGS (18)
  1. MAGNESIUM [Concomitant]
     Active Substance: MAGNESIUM
  2. CALCIUM [Concomitant]
     Active Substance: CALCIUM
  3. ATORVASTATIN [Concomitant]
     Active Substance: ATORVASTATIN
  4. TRILAFON [Suspect]
     Active Substance: PERPHENAZINE
     Indication: MENTAL DISORDER
     Dosage: ?          QUANTITY:4 MG MILLIGRAM(S);?
     Route: 048
     Dates: start: 201410
  5. LOW DOSE ASPIRIN [Concomitant]
     Active Substance: ASPIRIN
  6. LOSARTAN POTASSIUM. [Concomitant]
     Active Substance: LOSARTAN POTASSIUM
  7. VITAMIN D [Concomitant]
     Active Substance: CHOLECALCIFEROL
  8. BACLOFEN. [Concomitant]
     Active Substance: BACLOFEN
  9. LEVIMIR INSULIN [Concomitant]
  10. FUROSEMIDE. [Concomitant]
     Active Substance: FUROSEMIDE
  11. VITAMIN C [Concomitant]
     Active Substance: ASCORBIC ACID
  12. CRANBERRY. [Concomitant]
     Active Substance: CRANBERRY
  13. TYLENOL [Concomitant]
     Active Substance: ACETAMINOPHEN
  14. CITALOPRAM [Concomitant]
     Active Substance: CITALOPRAM HYDROBROMIDE
  15. CARBAMAZAPINE [Concomitant]
     Active Substance: CARBAMAZEPINE
  16. ATENOLOL. [Concomitant]
     Active Substance: ATENOLOL
  17. AMLODIPINE BESYLATE. [Concomitant]
     Active Substance: AMLODIPINE BESYLATE
  18. ISOSORBIDE MONONITRATE ER [Concomitant]
     Active Substance: ISOSORBIDE MONONITRATE

REACTIONS (21)
  - Dizziness [None]
  - Cough [None]
  - Nasal congestion [None]
  - Restlessness [None]
  - Grunting [None]
  - Fall [None]
  - Akathisia [None]
  - Therapy change [None]
  - Chest discomfort [None]
  - Choking [None]
  - Dyspnoea [None]
  - Musculoskeletal stiffness [None]
  - Surgery [None]
  - Abnormal behaviour [None]
  - Insomnia [None]
  - Abdominal infection [None]
  - Headache [None]
  - Dysphagia [None]
  - Chest pain [None]
  - Movement disorder [None]
  - Screaming [None]

NARRATIVE: CASE EVENT DATE: 20160601
